FAERS Safety Report 7237999-4 (Version None)
Quarter: 2011Q1

REPORT INFORMATION
  Report Type: 
  Country: None (occurrence: None)
  Receive Date: 20110121
  Receipt Date: 20110114
  Transmission Date: 20110831
  Serious: Yes (Hospitalization)
  Sender: FDA-Public Use
  Company Number: A0803125A

PATIENT
  Age: 62 Year
  Sex: Male

DRUGS (1)
  1. AVANDIA [Suspect]
     Indication: DIABETES MELLITUS
     Dosage: 8MG PER DAY
     Route: 065
     Dates: start: 20040601, end: 20051201

REACTIONS (4)
  - PLEURAL EFFUSION [None]
  - NEPHROPATHY [None]
  - CARDIAC FAILURE CONGESTIVE [None]
  - HYPERTENSION [None]
